FAERS Safety Report 18797921 (Version 3)
Quarter: 2021Q2

REPORT INFORMATION
  Report Type: Report from Study
  Country: PL (occurrence: PL)
  Receive Date: 20210128
  Receipt Date: 20210511
  Transmission Date: 20210717
  Serious: Yes (Hospitalization)
  Sender: FDA-Public Use
  Company Number: PL-ROCHE-2757541

PATIENT
  Age: 70 Year
  Sex: Male
  Weight: 95 kg

DRUGS (7)
  1. CO?VALSACOR [Concomitant]
     Indication: HYPERTENSION
     Route: 048
     Dates: start: 2015
  2. BISOCARD [Concomitant]
     Active Substance: BISOPROLOL
     Indication: HYPERTENSION
     Route: 048
     Dates: start: 2015
  3. DOXONEX [Concomitant]
     Indication: HYPERTENSION
     Route: 048
     Dates: start: 2015
  4. ACIDUM ZOLEDRONICUM [Concomitant]
     Active Substance: ZOLEDRONIC ACID
     Indication: METASTASES TO BONE
     Route: 042
     Dates: start: 20190606
  5. TULIP (POLAND) [Concomitant]
     Indication: HYPERTENSION
     Route: 048
     Dates: start: 2015
  6. ATEZOLIZUMAB. [Suspect]
     Active Substance: ATEZOLIZUMAB
     Indication: RENAL CELL CARCINOMA
     Dosage: ON 28/DEC/2020, HE RECEIVED THE MOST RECENT DOSE OF ATEZOLIZUMAB (1200 MG) PRIOR TO SERIOUS ADVERSE
     Route: 041
     Dates: start: 20201116
  7. CABOZANTINIB [Suspect]
     Active Substance: CABOZANTINIB
     Indication: RENAL CELL CARCINOMA
     Dosage: ON 17/JAN/2021, HE RECEIVED THE MOST RECENT DOSE OF CABOZANTINIB (60 MG) PRIOR TO SERIOUS ADVERSE EV
     Route: 048
     Dates: start: 20201116

REACTIONS (1)
  - Anaemia [Recovered/Resolved]

NARRATIVE: CASE EVENT DATE: 20210125
